FAERS Safety Report 8052916-5 (Version None)
Quarter: 2012Q1

REPORT INFORMATION
  Report Type: 
  Country: None (occurrence: None)
  Receive Date: 20120118
  Receipt Date: 20120111
  Transmission Date: 20120608
  Serious: Yes (Other)
  Sender: FDA-Public Use
  Company Number: JP-PFIZER INC-2011308103

PATIENT
  Age: 62 Year
  Sex: Male

DRUGS (2)
  1. ASPIRIN [Concomitant]
     Dosage: 100 MG/DAY
     Route: 048
  2. LYRICA [Suspect]
     Dosage: 25 MG, 3X/DAY
     Route: 048

REACTIONS (1)
  - GASTRITIS EROSIVE [None]
